FAERS Safety Report 10756140 (Version 3)
Quarter: 2015Q3

REPORT INFORMATION
  Report Type: Report from Study
  Country: FR (occurrence: FR)
  Receive Date: 20150202
  Receipt Date: 20150928
  Transmission Date: 20151125
  Serious: Yes (Hospitalization)
  Sender: FDA-Public Use
  Company Number: FR-009507513-1410FRA016389

PATIENT
  Age: 69 Year
  Sex: Male
  Weight: 92 kg

DRUGS (7)
  1. BOCEPREVIR [Suspect]
     Active Substance: BOCEPREVIR
     Indication: CHRONIC HEPATITIS C
     Dosage: 2400MG, DAILY, ORALLY; STRENGTH: 200 MG; FREQUENCY 800 MG THREE TIMES.
     Route: 048
     Dates: start: 20130124, end: 20131222
  2. PEGASYS [Suspect]
     Active Substance: PEGINTERFERON ALFA-2A
     Indication: CHRONIC HEPATITIS C
     Dosage: 180 MICROGRAMS PER WEEK
     Route: 058
     Dates: start: 20130124, end: 20130306
  3. PEGASYS [Suspect]
     Active Substance: PEGINTERFERON ALFA-2A
     Dosage: 135 MICROGRAMS PER WEEK
     Route: 058
     Dates: start: 20130307, end: 20131222
  4. COPEGUS [Suspect]
     Active Substance: RIBAVIRIN
     Dosage: 600 MG, QD
     Route: 048
     Dates: start: 20130729, end: 20131229
  5. RIBAVIRIN. [Suspect]
     Active Substance: RIBAVIRIN
     Indication: CHRONIC HEPATITIS C
     Dosage: 1200 MG, DAY
     Route: 048
     Dates: start: 20130422, end: 20130517
  6. COPEGUS [Suspect]
     Active Substance: RIBAVIRIN
     Indication: CHRONIC HEPATITIS C
     Dosage: 600 MG, DAILY
     Route: 048
     Dates: start: 20130422, end: 20130527
  7. COPEGUS [Suspect]
     Active Substance: RIBAVIRIN
     Dosage: 400 MG, QD
     Route: 048
     Dates: start: 20130530, end: 20130728

REACTIONS (1)
  - Oral administration complication [Recovered/Resolved]

NARRATIVE: CASE EVENT DATE: 20130422
